FAERS Safety Report 9226653 (Version 2)
Quarter: 2013Q2

REPORT INFORMATION
  Report Type: Spontaneous
  Country: US (occurrence: US)
  Receive Date: 20130412
  Receipt Date: 20130418
  Transmission Date: 20140414
  Serious: No
  Sender: FDA-Public Use
  Company Number: US-PFIZER INC-2013112332

PATIENT
  Age: 65 Year
  Sex: Male
  Weight: 121 kg

DRUGS (8)
  1. TIKOSYN [Suspect]
     Indication: ARRHYTHMIA PROPHYLAXIS
     Dosage: 0.25 MG, 2X/DAY
     Route: 048
     Dates: start: 20130323
  2. PRADAXA [Concomitant]
     Dosage: 150 MG, UNK
  3. LISINOPRIL [Concomitant]
     Dosage: UNK
  4. METOPROLOL [Concomitant]
     Dosage: UNK
  5. FUROSEMIDE [Concomitant]
     Dosage: UNK
  6. LORAZEPAM [Concomitant]
     Dosage: UNK
  7. CALCIUM [Concomitant]
     Dosage: UNK
  8. ASPIRIN [Concomitant]
     Dosage: UNK

REACTIONS (1)
  - Heart rate irregular [Unknown]
